FAERS Safety Report 19800372 (Version 1)
Quarter: 2021Q3

REPORT INFORMATION
  Report Type: Spontaneous
  Country: US (occurrence: US)
  Receive Date: 20210907
  Receipt Date: 20210907
  Transmission Date: 20211014
  Serious: No
  Sender: FDA-Public Use
  Company Number: US-FAGRON STERILE SERVICES-2118078

PATIENT

DRUGS (1)
  1. SUCCINYLCHOLINE 20MG/ML INJ. (API) 10ML [Suspect]
     Active Substance: SUCCINYLCHOLINE CHLORIDE

REACTIONS (1)
  - Drug ineffective [None]
